FAERS Safety Report 15798590 (Version 1)
Quarter: 2019Q1

REPORT INFORMATION
  Report Type: Spontaneous
  Country: CN (occurrence: CN)
  Receive Date: 20190108
  Receipt Date: 20190108
  Transmission Date: 20190417
  Serious: Yes (Life-Threatening, Hospitalization, Other)
  Sender: FDA-Public Use
  Company Number: CN-PFIZER INC-2019003450

PATIENT
  Age: 67 Year
  Sex: Male
  Weight: 60 kg

DRUGS (2)
  1. TAZOCIN [Suspect]
     Active Substance: PIPERACILLIN SODIUM\TAZOBACTAM SODIUM
     Indication: CHRONIC OBSTRUCTIVE PULMONARY DISEASE
     Dosage: 4.5 G, 1X/DAY
     Route: 041
     Dates: start: 20181101, end: 20181101
  2. TAZOCIN [Suspect]
     Active Substance: PIPERACILLIN SODIUM\TAZOBACTAM SODIUM
     Indication: LOWER RESPIRATORY TRACT INFECTION

REACTIONS (10)
  - Dyspnoea [Recovering/Resolving]
  - Confusional state [Unknown]
  - Respiratory arrest [Recovered/Resolved]
  - Respiration abnormal [Recovered/Resolved]
  - Cardiac arrest [Recovered/Resolved]
  - Muscle spasms [Recovered/Resolved]
  - Anaphylactic shock [Recovering/Resolving]
  - Muscle twitching [Recovering/Resolving]
  - Cyanosis [Recovered/Resolved]
  - Heart rate decreased [Recovered/Resolved]

NARRATIVE: CASE EVENT DATE: 20181101
